FAERS Safety Report 23891519 (Version 4)
Quarter: 2025Q2

REPORT INFORMATION
  Report Type: Spontaneous
  Country: JP (occurrence: JP)
  Receive Date: 20240524
  Receipt Date: 20250629
  Transmission Date: 20250716
  Serious: Yes (Life-Threatening, Hospitalization, Disabling, Other)
  Sender: NOVARTIS
  Company Number: JP-002147023-NVSJ2024JP005969

PATIENT
  Age: 55 Year
  Sex: Female
  Weight: 61 kg

DRUGS (2)
  1. KESIMPTA [Suspect]
     Active Substance: OFATUMUMAB
     Indication: Relapsing-remitting multiple sclerosis
     Route: 058
     Dates: start: 20230724, end: 20240503
  2. Atorvastatin me [Concomitant]
     Indication: Product used for unknown indication
     Route: 065

REACTIONS (12)
  - Meningitis bacterial [Recovering/Resolving]
  - Endocarditis [Recovering/Resolving]
  - Bacterial endophthalmitis [Recovered/Resolved with Sequelae]
  - Conjunctival hyperaemia [Recovering/Resolving]
  - Visual acuity reduced [Recovering/Resolving]
  - Streptococcal bacteraemia [Recovering/Resolving]
  - Pyrexia [Recovering/Resolving]
  - Oropharyngeal pain [Recovering/Resolving]
  - Cerebral microinfarction [Recovering/Resolving]
  - Deafness [Recovering/Resolving]
  - Visual impairment [Recovering/Resolving]
  - Streptococcal urinary tract infection [Recovering/Resolving]

NARRATIVE: CASE EVENT DATE: 20240508
